FAERS Safety Report 8807238 (Version 1)
Quarter: 2012Q4

REPORT INFORMATION
  Report Type: 
  Country: IN (occurrence: IN)
  Receive Date: 20120925
  Receipt Date: 20120925
  Transmission Date: 20130627
  Serious: Yes (Life-Threatening, Other)
  Sender: FDA-Public Use
  Company Number: IN-ASTRAZENECA-2012SE73489

PATIENT
  Age: 42 Year
  Sex: Male

DRUGS (7)
  1. LIGNOCAINE [Suspect]
     Indication: LOCAL ANAESTHESIA
     Route: 053
  2. LIGNOCAINE [Suspect]
     Indication: LOCAL ANAESTHESIA
     Dosage: 4 ML MIXTURE OF ANAESTHETICS INFERO-TEMPORAL BLOCK
     Route: 053
  3. BUPIVACAINE [Suspect]
     Indication: LOCAL ANAESTHESIA
     Route: 053
  4. BUPIVACAINE [Suspect]
     Indication: LOCAL ANAESTHESIA
     Dosage: 4 ML MIXTURE OF ANAESTHETICS INFERO-TEMPORAL BLOCK
     Route: 053
  5. INDAPAMIDE [Concomitant]
     Indication: HYPERTENSION
  6. TRIAMTERENE [Concomitant]
     Indication: HYPERTENSION
  7. BENZTHIAZIDE [Concomitant]
     Indication: HYPERTENSION

REACTIONS (2)
  - Pulmonary oedema [Recovered/Resolved]
  - Convulsion [Recovered/Resolved]
